FAERS Safety Report 9842566 (Version 1)
Quarter: 2014Q1

REPORT INFORMATION
  Report Type: Spontaneous
  Country: US (occurrence: US)
  Receive Date: 20140124
  Receipt Date: 20140124
  Transmission Date: 20141002
  Serious: No
  Sender: FDA-Public Use
  Company Number: US-GILEAD-2011-0047810

PATIENT
  Sex: Female

DRUGS (3)
  1. RANEXA [Suspect]
     Indication: PRODUCT USED FOR UNKNOWN INDICATION
     Dosage: 500 MG, UNK
     Route: 048
     Dates: start: 201106
  2. PLAVIX                             /01220701/ [Concomitant]
  3. SIMVASTATIN [Concomitant]
     Dosage: 40 MG, UNK

REACTIONS (2)
  - Strabismus [Unknown]
  - Dizziness [Unknown]
